FAERS Safety Report 25077720 (Version 2)
Quarter: 2025Q1

REPORT INFORMATION
  Report Type: Spontaneous
  Country: EG (occurrence: EG)
  Receive Date: 20250314
  Receipt Date: 20250324
  Transmission Date: 20250408
  Serious: Yes (Hospitalization, Other)
  Sender: NOVO NORDISK
  Company Number: EG-NOVOPROD-1385888

PATIENT
  Age: 57 Year
  Sex: Male
  Weight: 82 kg

DRUGS (15)
  1. NOVORAPID [Suspect]
     Active Substance: INSULIN ASPART
     Indication: Type 1 diabetes mellitus
  2. NOVORAPID [Suspect]
     Active Substance: INSULIN ASPART
  3. NOVORAPID [Suspect]
     Active Substance: INSULIN ASPART
  4. NOVORAPID [Suspect]
     Active Substance: INSULIN ASPART
     Indication: Type 1 diabetes mellitus
     Route: 058
     Dates: start: 202304
  5. NOVORAPID [Suspect]
     Active Substance: INSULIN ASPART
     Route: 058
  6. NOVORAPID [Suspect]
     Active Substance: INSULIN ASPART
     Route: 058
  7. FELODIPINE\METOPROLOL SUCCINATE [Concomitant]
     Active Substance: FELODIPINE\METOPROLOL SUCCINATE
     Indication: Hypertension
     Dates: start: 2009
  8. HYDROCHLOROTHIAZIDE\IRBESARTAN [Concomitant]
     Active Substance: HYDROCHLOROTHIAZIDE\IRBESARTAN
     Indication: Hypertension
     Dates: start: 2009, end: 2016
  9. KANSARTAN PLUS [Concomitant]
     Indication: Hypertension
     Dates: start: 2016
  10. ITOPRIDE [Concomitant]
     Active Substance: ITOPRIDE
     Indication: Prophylaxis
     Dates: start: 202404
  11. PENTASTATIN [Concomitant]
     Indication: Blood cholesterol abnormal
     Dates: start: 202404
  12. ASPROTECT [Concomitant]
     Indication: Anticoagulant therapy
     Dates: start: 2009
  13. EPIMAG [Concomitant]
     Indication: Mineral supplementation
     Dates: start: 202312
  14. BON-ONE [Concomitant]
     Indication: Vitamin supplementation
     Dates: start: 202312
  15. LIPITOR [Concomitant]
     Active Substance: ATORVASTATIN CALCIUM
     Indication: Blood cholesterol abnormal
     Dates: start: 2009, end: 2021

REACTIONS (3)
  - Lower limb fracture [Recovered/Resolved]
  - Fracture [Recovered/Resolved]
  - Foot fracture [Not Recovered/Not Resolved]

NARRATIVE: CASE EVENT DATE: 20220101
